FAERS Safety Report 21645979 (Version 1)
Quarter: 2022Q4

REPORT INFORMATION
  Report Type: Report from Study
  Country: US (occurrence: US)
  Receive Date: 20221126
  Receipt Date: 20221126
  Transmission Date: 20230112
  Serious: Yes (Hospitalization, Other)
  Sender: FDA-Public Use
  Company Number: US-ABBVIE-4214692

PATIENT
  Sex: Male

DRUGS (4)
  1. VENCLEXTA [Suspect]
     Active Substance: VENETOCLAX
     Indication: Acute myeloid leukaemia
     Dosage: TAKE 2 TABLET(S) BY MOUTH DAILY FOR 14 DAYS ON THEN 14 DAYS OFF?FORM STRENGTH 50 MG AND 10 MG
     Route: 048
  2. VENCLEXTA [Suspect]
     Active Substance: VENETOCLAX
     Indication: Acute myeloid leukaemia
     Dosage: TAKE 2 TABLET(S) BY MOUTH DAILY FOR 14 DAYS ON THEN 14 DAYS OFF?FORM STRENGTH 50 MG AND 10 MG
     Route: 048
  3. VENCLEXTA [Suspect]
     Active Substance: VENETOCLAX
     Indication: Acute myeloid leukaemia
     Dosage: TAKE 2 TABLET(S) BY MOUTH DAILY FOR 14 DAYS ON THEN 14 DAYS OFF?FORM STRENGTH 50 MG AND 10 MG
     Route: 048
  4. VENCLEXTA [Suspect]
     Active Substance: VENETOCLAX
     Indication: Acute myeloid leukaemia
     Dosage: TAKE 2 TABLET(S) BY MOUTH DAILY FOR 14 DAYS ON THEN 14 DAYS OFF?FORM STRENGTH 50 MG AND 10 MG
     Route: 048

REACTIONS (2)
  - Leukaemia recurrent [Unknown]
  - Off label use [Unknown]
